FAERS Safety Report 5098926-1 (Version None)
Quarter: 2006Q3

REPORT INFORMATION
  Report Type: 
  Country: None (occurrence: None)
  Receive Date: 20060907
  Receipt Date: 20060906
  Transmission Date: 20061208
  Serious: Yes (Other)
  Sender: FDA-Public Use
  Company Number: US-GLAXOSMITHKLINE-A0619201A

PATIENT
  Age: 23 Year
  Sex: Female

DRUGS (2)
  1. TARGET NTS 21MG [Suspect]
     Indication: SMOKING CESSATION THERAPY
     Dosage: 21MG SINGLE DOSE
     Route: 062
     Dates: start: 20060906, end: 20060906
  2. MICROGESTIN FE 1/20 [Concomitant]

REACTIONS (4)
  - DIZZINESS [None]
  - LOSS OF CONSCIOUSNESS [None]
  - NAUSEA [None]
  - TUNNEL VISION [None]
